FAERS Safety Report 9163651 (Version 2)
Quarter: 2013Q2

REPORT INFORMATION
  Report Type: Spontaneous
  Country: DE (occurrence: DE)
  Receive Date: 20130314
  Receipt Date: 20130411
  Transmission Date: 20140414
  Serious: Yes (Disabling, Other)
  Sender: FDA-Public Use
  Company Number: DE-ABBOTT-13X-062-1060611-00

PATIENT
  Age: 69 Year
  Sex: Female
  Weight: 70 kg

DRUGS (5)
  1. CLARITHROMYCIN [Suspect]
     Indication: PNEUMONIA
     Dosage: 1-0-1, STRUCTURE DOSAGES NUMBER: 500 MG
     Route: 048
     Dates: start: 20110204, end: 20110204
  2. CLARITHROMYCIN [Suspect]
     Dosage: DISCONTINUATION AFTER MORNING DOSE
     Route: 048
     Dates: start: 20110205, end: 20110205
  3. BRILIQUE [Suspect]
     Indication: ACUTE MYOCARDIAL INFARCTION
     Dosage: 180 MG INITIAL DOSE, 90 MG IN THE EVENING
     Route: 048
     Dates: start: 20110204, end: 20110204
  4. BRILIQUE [Suspect]
     Indication: CORONARY ANGIOPLASTY
     Dosage: JUST MORNING ADMINISTRATION
     Route: 048
     Dates: start: 20110205, end: 20110205
  5. BRILIQUE [Suspect]
     Indication: CORONARY ARTERIAL STENT INSERTION

REACTIONS (12)
  - Delirium [Not Recovered/Not Resolved]
  - Altered state of consciousness [Not Recovered/Not Resolved]
  - Haematoma [Not Recovered/Not Resolved]
  - Hallucination [Not Recovered/Not Resolved]
  - Transaminases increased [Not Recovered/Not Resolved]
  - Gamma-glutamyltransferase increased [Not Recovered/Not Resolved]
  - Prothrombin time prolonged [Unknown]
  - Activated partial thromboplastin time prolonged [Unknown]
  - Atrial flutter [Unknown]
  - Cardiac failure [Unknown]
  - Bundle branch block left [Unknown]
  - Ejection fraction [Unknown]
